FAERS Safety Report 18203604 (Version 1)
Quarter: 2020Q3

REPORT INFORMATION
  Report Type: Spontaneous
  Country: FR (occurrence: FR)
  Receive Date: 20200827
  Receipt Date: 20200827
  Transmission Date: 20201103
  Serious: Yes (Hospitalization)
  Sender: FDA-Public Use
  Company Number: FR-MYLANLABS-2020M1073285

PATIENT
  Age: 70 Year
  Sex: Female
  Weight: 67.2 kg

DRUGS (9)
  1. ALFUZOSIN [Suspect]
     Active Substance: ALFUZOSIN
     Indication: PRODUCT USED FOR UNKNOWN INDICATION
     Dosage: 10 MILLIGRAM, QD
     Route: 048
     Dates: start: 20181219
  2. METRONIDAZOLE B BRAUN [Suspect]
     Active Substance: METRONIDAZOLE
     Indication: EMPHYSEMATOUS PYELONEPHRITIS
     Dosage: 1500 MILLIGRAM, QD
     Route: 048
     Dates: start: 20181218, end: 20190109
  3. IPRATROPIUM                        /00391402/ [Concomitant]
     Active Substance: IPRATROPIUM BROMIDE
     Dosage: UNK
  4. ACIDE FOLIQUE [Concomitant]
     Active Substance: FOLIC ACID
     Dosage: UNK
  5. INNOHEP [Concomitant]
     Active Substance: TINZAPARIN SODIUM
     Dosage: UNK
  6. C?FOTAXIME MYLAN 1 G, POUDRE POUR SOLUTION INJECTABLE (IM?IV) [Suspect]
     Active Substance: CEFOTAXIME SODIUM
     Indication: EMPHYSEMATOUS PYELONEPHRITIS
     Dosage: 3 GRAM, QD
     Route: 042
     Dates: start: 20181218, end: 20190108
  7. LEVETIRACETAM. [Concomitant]
     Active Substance: LEVETIRACETAM
     Dosage: UNK
  8. FUMAFER [Concomitant]
     Active Substance: FERROUS FUMARATE
     Dosage: UNK
  9. OFLOXACINE MYLAN 200 MG, COMPRIM? PELLICUL? S?CABLE [Suspect]
     Active Substance: OFLOXACIN
     Indication: EMPHYSEMATOUS PYELONEPHRITIS
     Dosage: 400 MILLIGRAM, QD
     Route: 048
     Dates: start: 20190104, end: 20190105

REACTIONS (1)
  - Tonic clonic movements [Recovered/Resolved]

NARRATIVE: CASE EVENT DATE: 20190105
